FAERS Safety Report 5981035-4 (Version None)
Quarter: 2008Q4

REPORT INFORMATION
  Report Type: 
  Country: None (occurrence: None)
  Receive Date: 20081126
  Receipt Date: 20080912
  Transmission Date: 20090506
  Serious: Yes (Other)
  Sender: FDA-Public Use
  Company Number: 2008BH009810

PATIENT
  Age: 45 Year
  Sex: Female

DRUGS (3)
  1. DIANEAL [Suspect]
     Indication: PERITONEAL DIALYSIS
     Dosage: 12 L;EVERY DAY;IP
     Route: 033
     Dates: start: 20071114
  2. DIOVAN [Concomitant]
  3. LASIX [Concomitant]

REACTIONS (3)
  - PERITONEAL DIALYSIS COMPLICATION [None]
  - PERITONITIS [None]
  - VOMITING [None]
